FAERS Safety Report 14174551 (Version 2)
Quarter: 2018Q1

REPORT INFORMATION
  Report Type: Spontaneous
  Country: JP (occurrence: JP)
  Receive Date: 20171109
  Receipt Date: 20180330
  Transmission Date: 20180508
  Serious: Yes (Hospitalization, Other)
  Sender: FDA-Public Use
  Company Number: JP-PFIZER INC-2017478051

PATIENT
  Age: 75 Year
  Sex: Female
  Weight: 64 kg

DRUGS (1)
  1. XALKORI [Suspect]
     Active Substance: CRIZOTINIB
     Indication: LUNG CARCINOMA CELL TYPE UNSPECIFIED RECURRENT
     Dosage: 250 MG, 2X/DAY
     Route: 048
     Dates: start: 20171025, end: 20171105

REACTIONS (6)
  - Rash generalised [Recovered/Resolved]
  - White blood cell count decreased [Recovering/Resolving]
  - Pruritus [Recovered/Resolved]
  - Renal impairment [Recovered/Resolved]
  - Hepatic function abnormal [Recovering/Resolving]
  - Pyrexia [Recovered/Resolved]

NARRATIVE: CASE EVENT DATE: 20171027
